FAERS Safety Report 6340202-0 (Version None)
Quarter: 2009Q3

REPORT INFORMATION
  Report Type: 
  Country: None (occurrence: None)
  Receive Date: 20090903
  Receipt Date: 20090826
  Transmission Date: 20100115
  Serious: Yes (Hospitalization)
  Sender: FDA-Public Use
  Company Number: IT-ABBOTT-09P-083-0593343-00

PATIENT
  Sex: Male

DRUGS (7)
  1. CLARITHROMYCIN [Suspect]
     Indication: HELICOBACTER INFECTION
     Route: 048
     Dates: start: 20090817
  2. ACEDIUR [Suspect]
     Indication: DRUG USE FOR UNKNOWN INDICATION
     Route: 061
  3. LASIX [Suspect]
     Indication: DRUG USE FOR UNKNOWN INDICATION
  4. SUGUAN [Suspect]
     Indication: DRUG USE FOR UNKNOWN INDICATION
  5. PRADIF [Suspect]
     Indication: DRUG USE FOR UNKNOWN INDICATION
  6. AMOXICILLIN [Suspect]
     Indication: HELICOBACTER INFECTION
     Route: 048
     Dates: start: 20090817
  7. OMEPRAZOLE [Suspect]
     Indication: HELICOBACTER INFECTION
     Route: 048
     Dates: start: 20090817

REACTIONS (3)
  - DELIRIUM [None]
  - DIARRHOEA [None]
  - ERYTHEMA [None]
